FAERS Safety Report 10232735 (Version 1)
Quarter: 2014Q2

REPORT INFORMATION
  Report Type: Spontaneous
  Country: US (occurrence: None)
  Receive Date: 20140611
  Receipt Date: 20140611
  Transmission Date: 20141212
  Serious: Yes (Other)
  Sender: FDA-Public Use
  Company Number: None

PATIENT
  Age: 55 Year
  Sex: Female
  Weight: 63.5 kg

DRUGS (4)
  1. MS CONTIN [Suspect]
     Indication: POST LAMINECTOMY SYNDROME
     Dosage: 60MG/ 1 PILL, THREE TIMES DAILY, TAKEN BY MOUTH
     Route: 048
     Dates: start: 19970501, end: 19970601
  2. MS CONTIN [Suspect]
     Dosage: 60MG/ 1 PILL, THREE TIMES DAILY, TAKEN BY MOUTH
     Route: 048
     Dates: start: 19970501, end: 19970601
  3. OXYCODONE [Suspect]
     Indication: POST LAMINECTOMY SYNDROME
     Route: 048
     Dates: start: 20140401, end: 20140501
  4. OXYCODONE [Suspect]
     Indication: PAIN
     Route: 048
     Dates: start: 20140401, end: 20140501

REACTIONS (6)
  - Abdominal pain [None]
  - Gastrooesophageal reflux disease [None]
  - Nausea [None]
  - Drug effect decreased [None]
  - Dizziness [None]
  - Headache [None]
